FAERS Safety Report 6874391-6 (Version None)
Quarter: 2010Q3

REPORT INFORMATION
  Report Type: 
  Country: None (occurrence: None)
  Receive Date: 20100723
  Receipt Date: 20090513
  Transmission Date: 20110219
  Serious: No
  Sender: FDA-Public Use
  Company Number: US-PFIZER INC-2009209309

PATIENT
  Sex: Female
  Weight: 72.574 kg

DRUGS (1)
  1. CHANTIX [Suspect]
     Indication: SMOKING CESSATION THERAPY
     Dates: start: 20090413, end: 20090424

REACTIONS (6)
  - ABNORMAL DREAMS [None]
  - DEPRESSED MOOD [None]
  - LETHARGY [None]
  - MOOD ALTERED [None]
  - NEGATIVE THOUGHTS [None]
  - NIGHTMARE [None]
